FAERS Safety Report 13857467 (Version 2)
Quarter: 2017Q3

REPORT INFORMATION
  Report Type: Report from Study
  Country: None (occurrence: DE)
  Receive Date: 20170810
  Receipt Date: 20170829
  Transmission Date: 20171127
  Serious: Yes (Hospitalization)
  Sender: FDA-Public Use
  Company Number: DE-ABBVIE-17K-062-2068334-00

PATIENT
  Age: 66 Year
  Sex: Male

DRUGS (9)
  1. MIRTAZAPIN [Concomitant]
     Active Substance: MIRTAZAPINE
     Indication: PRODUCT USED FOR UNKNOWN INDICATION
  2. ZOLOFT [Concomitant]
     Active Substance: SERTRALINE HYDROCHLORIDE
     Indication: PRODUCT USED FOR UNKNOWN INDICATION
  3. PANTOZOL (ERYTHROMYCIN\SULFISOXAZOLE) [Concomitant]
     Active Substance: ERYTHROMYCIN\SULFISOXAZOLE
     Indication: PRODUCT USED FOR UNKNOWN INDICATION
  4. PROPRANOLOL [Concomitant]
     Active Substance: PROPRANOLOL HYDROCHLORIDE
     Indication: PRODUCT USED FOR UNKNOWN INDICATION
  5. MADOPAR LT [Concomitant]
     Active Substance: BENSERAZIDE HYDROCHLORIDE\LEVODOPA
     Indication: PRODUCT USED FOR UNKNOWN INDICATION
     Dosage: BEFORE NIGHT AS NEEDED
  6. DUODOPA [Suspect]
     Active Substance: CARBIDOPA\LEVODOPA
     Indication: PARKINSON^S DISEASE
     Dosage: MD 9.0ML;?CRD 2.6ML/H;?ED 1.5ML
     Route: 050
     Dates: start: 20170712
  7. MADOPAR [Concomitant]
     Active Substance: BENSERAZIDE HYDROCHLORIDE\LEVODOPA
     Indication: PRODUCT USED FOR UNKNOWN INDICATION
     Dosage: 2 BEFORE NIGHT
  8. QUETIAPIN [Concomitant]
     Active Substance: QUETIAPINE
     Indication: PRODUCT USED FOR UNKNOWN INDICATION
  9. TAVOR (LORAZEPAM) [Concomitant]
     Active Substance: LORAZEPAM
     Indication: PRODUCT USED FOR UNKNOWN INDICATION

REACTIONS (5)
  - Fall [Not Recovered/Not Resolved]
  - Mobility decreased [Unknown]
  - Hyperkinesia [Not Recovered/Not Resolved]
  - Device dislocation [Unknown]
  - Hypokinesia [Unknown]

NARRATIVE: CASE EVENT DATE: 2017
